FAERS Safety Report 8643635 (Version 6)
Quarter: 2015Q1

REPORT INFORMATION
  Report Type: Spontaneous
  Country: FR (occurrence: FR)
  Receive Date: 20120629
  Receipt Date: 20150227
  Transmission Date: 20150721
  Serious: Yes (Other)
  Sender: FDA-Public Use
  Company Number: FR-PFIZER INC-2012154782

PATIENT
  Age: 60 Year
  Sex: Female

DRUGS (20)
  1. SANDIMMUNE [Interacting]
     Active Substance: CYCLOSPORINE
     Indication: IMMUNOSUPPRESSANT DRUG THERAPY
     Dosage: 100 MG, 1X/DAY
     Route: 048
     Dates: start: 20120603, end: 20120603
  2. SANDIMMUNE [Interacting]
     Active Substance: CYCLOSPORINE
     Dosage: 50 MG, 1X/DAY
     Route: 048
     Dates: start: 20120512, end: 20120602
  3. CELLCEPT [Concomitant]
     Active Substance: MYCOPHENOLATE MOFETIL\MYCOPHENOLATE MOFETIL HYDROCHLORIDE
     Indication: IMMUNOSUPPRESSANT DRUG THERAPY
     Dosage: 2 G, DAILY
     Route: 042
  4. CELLCEPT [Concomitant]
     Active Substance: MYCOPHENOLATE MOFETIL\MYCOPHENOLATE MOFETIL HYDROCHLORIDE
     Dosage: 1000 MG, 2X/DAY
  5. HEPARIN [Concomitant]
     Active Substance: HEPARIN SODIUM
     Indication: ANTICOAGULANT THERAPY
     Dosage: UNK
  6. SANDIMMUNE [Interacting]
     Active Substance: CYCLOSPORINE
     Dosage: 150 MG, 1X/DAY
     Route: 048
     Dates: start: 20120604, end: 20120604
  7. METHYLPREDNISOLONE. [Concomitant]
     Active Substance: METHYLPREDNISOLONE
     Indication: IMMUNOSUPPRESSANT DRUG THERAPY
     Dosage: 40 MG, DAILY
     Route: 042
  8. ACETAMINOPHEN. [Concomitant]
     Active Substance: ACETAMINOPHEN
     Indication: POSTOPERATIVE CARE
     Dosage: 1000 MG, 4X/DAY ON DEMAND
  9. ARGANOVA [Suspect]
     Active Substance: ARGATROBAN
     Indication: HEPARIN-INDUCED THROMBOCYTOPENIA
     Dosage: 50 MG, 1X/DAY
     Route: 042
     Dates: start: 20120601, end: 20120603
  10. SANDIMMUNE [Interacting]
     Active Substance: CYCLOSPORINE
     Dosage: 150 MG, 1X/DAY
     Route: 048
     Dates: start: 20120604, end: 20120604
  11. MIDAZOLAM [Concomitant]
     Active Substance: MIDAZOLAM\MIDAZOLAM HYDROCHLORIDE
     Indication: ANAESTHESIA
     Dosage: UNK
  12. SUFENTANIL CITRATE. [Concomitant]
     Active Substance: SUFENTANIL CITRATE
     Indication: ANAESTHESIA
     Dosage: UNK
  13. SOLUPRED [Concomitant]
     Active Substance: PREDNISOLONE
     Dosage: 5 MG, 1X/DAY (0.1 MG/KG A DAY)
  14. ONDANSETRON [Concomitant]
     Active Substance: ONDANSETRON
     Indication: POSTOPERATIVE CARE
     Dosage: 12 MG, 1X/DAY  ON DEMAND
  15. ESOMEPRAZOLE [Concomitant]
     Active Substance: ESOMEPRAZOLE
     Indication: POSTOPERATIVE CARE
     Dosage: 40 MG, 1X/DAY
  16. SANDIMMUNE [Interacting]
     Active Substance: CYCLOSPORINE
     Indication: HEART TRANSPLANT
     Dosage: 75 MG, 1X/DAY
     Route: 048
     Dates: start: 20120512, end: 20120602
  17. SANDIMMUNE [Interacting]
     Active Substance: CYCLOSPORINE
     Dosage: 200 MG, 1X/DAY
     Route: 048
     Dates: start: 20120605, end: 20120605
  18. CEFTAZIDIME. [Concomitant]
     Active Substance: CEFTAZIDIME
     Indication: ANTIBIOTIC THERAPY
     Dosage: 2000 MG, 1X/DAY
     Route: 042
  19. LINEZOLID. [Concomitant]
     Active Substance: LINEZOLID
     Indication: ANTIBIOTIC THERAPY
     Dosage: 600 MG, 2X/DAY
     Route: 042
  20. GANCICLOVIR. [Concomitant]
     Active Substance: GANCICLOVIR
     Indication: ANTIVIRAL TREATMENT
     Dosage: 125 MG, 2X/DAY
     Route: 042

REACTIONS (2)
  - Drug level decreased [Recovered/Resolved]
  - Drug interaction [Recovered/Resolved]

NARRATIVE: CASE EVENT DATE: 20120602
